FAERS Safety Report 4361166-5 (Version None)
Quarter: 2004Q2

REPORT INFORMATION
  Report Type: 
  Country: None (occurrence: None)
  Receive Date: 20040507
  Receipt Date: 20031114
  Transmission Date: 20050107
  Serious: Yes (Hospitalization)
  Sender: FDA-Public Use
  Company Number: PHEH2003US10512

PATIENT
  Age: 60 Year
  Sex: Female

DRUGS (10)
  1. TEGRETOL [Suspect]
     Indication: CONVULSION
     Dosage: 400 MG, TID, ORAL
     Route: 048
     Dates: end: 20031106
  2. COZAAR [Concomitant]
  3. GLUCOPHAGE [Concomitant]
  4. GLUCOTROL [Concomitant]
  5. HYDROCHLOROTHIAZIDE [Concomitant]
  6. NORVASC [Concomitant]
  7. ALBUTEROL [Concomitant]
  8. LIPITOR [Concomitant]
  9. FLONASE [Concomitant]
  10. KEPPRA [Concomitant]

REACTIONS (2)
  - DRUG LEVEL INCREASED [None]
  - HYPONATRAEMIA [None]
